FAERS Safety Report 22148406 (Version 1)
Quarter: 2023Q1

REPORT INFORMATION
  Report Type: Spontaneous
  Country: US (occurrence: US)
  Receive Date: 20230328
  Receipt Date: 20230328
  Transmission Date: 20230418
  Serious: Yes (Hospitalization)
  Sender: FDA-Public Use
  Company Number: US-SANOFI-01541918

PATIENT
  Age: 66 Year
  Sex: Female

DRUGS (3)
  1. TOUJEO [Suspect]
     Active Substance: INSULIN GLARGINE
     Indication: Type 2 diabetes mellitus
     Dosage: 60 - 64 UNITS, QD
     Dates: start: 2021
  2. BYDUREON [Concomitant]
     Active Substance: EXENATIDE
  3. MORINGA [MORINGA OLEIFERA] [Concomitant]

REACTIONS (4)
  - Spinal operation [Unknown]
  - COVID-19 [Unknown]
  - Nerve compression [Not Recovered/Not Resolved]
  - Blood glucose increased [Unknown]

NARRATIVE: CASE EVENT DATE: 20221001
